FAERS Safety Report 4767213-0 (Version None)
Quarter: 2005Q3

REPORT INFORMATION
  Report Type: 
  Country: None (occurrence: None)
  Receive Date: 20050909
  Receipt Date: 20050826
  Transmission Date: 20060218
  Serious: Yes (Hospitalization)
  Sender: FDA-Public Use
  Company Number: 2005-01834

PATIENT
  Age: 36 Year
  Sex: Female
  Weight: 50 kg

DRUGS (1)
  1. VELCADE [Suspect]
     Indication: HODGKIN'S DISEASE
     Dates: end: 20050811

REACTIONS (2)
  - HYPONATRAEMIA [None]
  - HYPOPHOSPHATAEMIA [None]
